FAERS Safety Report 20963160 (Version 1)
Quarter: 2022Q2

REPORT INFORMATION
  Report Type: Spontaneous
  Country: US (occurrence: US)
  Receive Date: 20220615
  Receipt Date: 20220615
  Transmission Date: 20220720
  Serious: Yes (Other)
  Sender: FDA-Public Use
  Company Number: US-009507513-2206USA002593

PATIENT
  Age: 65 Year
  Sex: Male

DRUGS (1)
  1. KEYTRUDA [Suspect]
     Active Substance: PEMBROLIZUMAB
     Indication: Basal cell carcinoma
     Dosage: 200 MILLIGRAM, Q3W
     Dates: start: 20180718, end: 20180815

REACTIONS (4)
  - Immune-mediated myositis [Unknown]
  - Ocular myasthenia [Unknown]
  - Myasthenia gravis [Unknown]
  - Product use in unapproved indication [Unknown]

NARRATIVE: CASE EVENT DATE: 20180718
